FAERS Safety Report 4903092-6 (Version None)
Quarter: 2006Q1

REPORT INFORMATION
  Report Type: 
  Country: None (occurrence: None)
  Receive Date: 20060207
  Receipt Date: 20051130
  Transmission Date: 20060701
  Serious: Yes (Death)
  Sender: FDA-Public Use
  Company Number: CH-MERCK-0512CHE00003

PATIENT
  Age: 73 Year
  Sex: Female

DRUGS (1)
  1. PRIMAXIN [Suspect]
     Indication: ARTHRITIS BACTERIAL
     Route: 042
     Dates: start: 20050101, end: 20050101

REACTIONS (2)
  - DEATH [None]
  - DELIRIUM [None]
